FAERS Safety Report 22234161 (Version 1)
Quarter: 2023Q2

REPORT INFORMATION
  Report Type: Spontaneous
  Country: JP (occurrence: None)
  Receive Date: 20230420
  Receipt Date: 20230420
  Transmission Date: 20230721
  Serious: Yes (Other)
  Sender: FDA-Public Use
  Company Number: 2023A091769

PATIENT
  Sex: Female

DRUGS (2)
  1. SEROQUEL [Suspect]
     Active Substance: QUETIAPINE FUMARATE
     Indication: Schizophrenia
     Dosage: 250 MG, ONCE DAILY, BEFORE BEDTIME
     Route: 048
  2. LEVOFLOXACIN [Concomitant]
     Active Substance: LEVOFLOXACIN
     Indication: Urethritis
     Dosage: UNK UNK, UNKNOWN FREQ.
     Route: 048
     Dates: start: 20230411

REACTIONS (9)
  - Anterograde amnesia [Unknown]
  - Urethritis [Unknown]
  - Feeling abnormal [Recovering/Resolving]
  - Hyporesponsive to stimuli [Recovering/Resolving]
  - Movement disorder [Recovering/Resolving]
  - Disturbance in attention [Recovering/Resolving]
  - Speech disorder [Recovering/Resolving]
  - Amimia [Recovering/Resolving]
  - Product use issue [Unknown]

NARRATIVE: CASE EVENT DATE: 20230411
